FAERS Safety Report 5139518-5 (Version None)
Quarter: 2006Q4

REPORT INFORMATION
  Report Type: 
  Country: None (occurrence: None)
  Receive Date: 20061024
  Receipt Date: 20061011
  Transmission Date: 20070319
  Serious: Yes (Death, Hospitalization)
  Sender: FDA-Public Use
  Company Number: 2006037088

PATIENT
  Age: 58 Year
  Sex: Male
  Weight: 62 kg

DRUGS (37)
  1. SUTENT [Suspect]
     Indication: RENAL CELL CARCINOMA STAGE UNSPECIFIED
     Dosage: SEE IMAGE
     Route: 048
     Dates: start: 20060104, end: 20060121
  2. SUTENT [Suspect]
     Indication: RENAL CELL CARCINOMA STAGE UNSPECIFIED
     Dosage: SEE IMAGE
     Route: 048
     Dates: start: 20060203, end: 20060214
  3. SUTENT [Suspect]
     Indication: RENAL CELL CARCINOMA STAGE UNSPECIFIED
     Dosage: SEE IMAGE
     Route: 048
     Dates: start: 20060228, end: 20060310
  4. CYCLONAMINE (ETAMSILATE) [Concomitant]
  5. EXACYL (TRANEXAMIC ACID) [Concomitant]
  6. CONTROLOC (PANTOPRAZOLE) [Concomitant]
  7. MORPHINE [Concomitant]
  8. ZOFRAN [Concomitant]
  9. METOCLOPRAMIDE [Concomitant]
  10. DEXTROSE [Concomitant]
  11. SOLUTIO RINGERI ^CIV^ (CALCIUM CHLORIDE DIHYDRATE, POTASSIUM CHLORIDE, [Concomitant]
  12. FENACTIL ^POLFA-JELENIA^ (CHLORPROMAZINE HYDROCHLORIDE) [Concomitant]
  13. DEXTRAN (DEXTRAN) [Concomitant]
  14. PYRALGIN (METAMIZOLE SODIUM) [Concomitant]
  15. NO-SPA (DROTAVERINE HYDROCHLORIDE) [Concomitant]
  16. TIENAM (CILASTATIN, IMIPENEM) [Concomitant]
  17. METRONIDAZOLE [Concomitant]
  18. HYDROCORTISONE [Concomitant]
  19. FUROSEMIDE [Concomitant]
  20. DOBUTAMINE (DOBUTAMINE) [Concomitant]
  21. CITALOPRAM HYDROBROMIDE [Concomitant]
  22. AMIZEPIN (CARBAMAZEPINE) [Concomitant]
  23. PERNAZINUM (PERAZINE DIMALEATE) [Concomitant]
  24. HYDROXYZINE [Concomitant]
  25. KALDYUM (POTASSIUM CHLORIDE) [Concomitant]
  26. CALCIUM (CALCIUM) [Concomitant]
  27. FRAXIPARINE (HEPARIN-FRACTION, CALCIUM SALT) [Concomitant]
  28. DURAGESIC-100 [Concomitant]
  29. MORPHINE SULFATE [Concomitant]
  30. KETONAL (KETOPROFEN) [Concomitant]
  31. ACETAMINOPHEN [Concomitant]
  32. POLPRAZOL (OMEPRAZOLE) [Concomitant]
  33. TIZANIDINE HCL [Concomitant]
  34. ESPUMISAN (DIMETICONE) [Concomitant]
  35. LOPERAMIDE HCL [Concomitant]
  36. RED BLOOD CELLS [Concomitant]
  37. DOPAMINE HCL [Concomitant]

REACTIONS (11)
  - ABDOMINAL PAIN [None]
  - ASCITES [None]
  - CARDIOVASCULAR INSUFFICIENCY [None]
  - CONFUSIONAL STATE [None]
  - DEHYDRATION [None]
  - DYSPNOEA [None]
  - GASTROINTESTINAL HAEMORRHAGE [None]
  - GENERAL PHYSICAL HEALTH DETERIORATION [None]
  - HAEMATEMESIS [None]
  - OVERDOSE [None]
  - SUBILEUS [None]
